FAERS Safety Report 7593477-4 (Version None)
Quarter: 2011Q3

REPORT INFORMATION
  Report Type: 
  Country: None (occurrence: None)
  Receive Date: 20110706
  Receipt Date: 20110629
  Transmission Date: 20111222
  Serious: Yes (Hospitalization)
  Sender: FDA-Public Use
  Company Number: DK-PFIZER INC-2011030707

PATIENT
  Sex: Female

DRUGS (4)
  1. LEVOTHYROXINE [Concomitant]
     Dosage: 0.1 MG, 1X/DAY
     Dates: start: 19850715
  2. NEXIUM [Concomitant]
     Dosage: 40 MG, 1X/DAY
     Dates: start: 20081001
  3. HYDROCORTISONE [Concomitant]
     Dosage: 30 MG, 1X/DAY
     Dates: start: 20050420
  4. SOMATROPIN [Suspect]
     Indication: HYPOPITUITARISM

REACTIONS (1)
  - GASTRIC ULCER [None]
